FAERS Safety Report 8957679 (Version 2)
Quarter: 2013Q1

REPORT INFORMATION
  Report Type: Report from Study
  Country: TR (occurrence: TR)
  Receive Date: 20121211
  Receipt Date: 20130102
  Transmission Date: 20140127
  Serious: Yes (Other)
  Sender: FDA-Public Use
  Company Number: TR-BAYER-2012-129056

PATIENT
  Age: 40 Year
  Sex: Female
  Weight: 55 kg

DRUGS (4)
  1. BETAFERON [Suspect]
     Indication: MULTIPLE SCLEROSIS
     Dosage: 8 MIU, UNK
     Route: 058
     Dates: start: 20090909, end: 20121129
  2. EFEXOR [Concomitant]
     Dosage: UNK
  3. SIRDALUD [Concomitant]
     Dosage: UNK
  4. REBIF [Concomitant]
     Dosage: UNK
     Dates: start: 201212

REACTIONS (2)
  - Muscle contractions involuntary [Recovering/Resolving]
  - Abasia [Recovering/Resolving]
